FAERS Safety Report 19519088 (Version 3)
Quarter: 2021Q3

REPORT INFORMATION
  Report Type: Spontaneous
  Country: US (occurrence: US)
  Receive Date: 20210712
  Receipt Date: 20210826
  Transmission Date: 20211014
  Serious: No
  Sender: FDA-Public Use
  Company Number: US-ASTRAZENECA-2021A553534

PATIENT
  Age: 57 Year
  Sex: Female
  Weight: 81.6 kg

DRUGS (1)
  1. BYDUREON BCISE [Suspect]
     Active Substance: EXENATIDE
     Indication: TYPE 2 DIABETES MELLITUS
     Route: 058

REACTIONS (10)
  - Injection site extravasation [Recovered/Resolved]
  - Injury associated with device [Recovered/Resolved]
  - Injection site scar [Not Recovered/Not Resolved]
  - Incorrect dose administered by device [Unknown]
  - Injection site nodule [Not Recovered/Not Resolved]
  - Device issue [Unknown]
  - Device failure [Unknown]
  - Device delivery system issue [Unknown]
  - Weight decreased [Not Recovered/Not Resolved]
  - Injection site haemorrhage [Recovered/Resolved]

NARRATIVE: CASE EVENT DATE: 2019
